FAERS Safety Report 24336144 (Version 1)
Quarter: 2024Q3

REPORT INFORMATION
  Report Type: Report from Study
  Country: ID (occurrence: ID)
  Receive Date: 20240919
  Receipt Date: 20240919
  Transmission Date: 20241017
  Serious: No
  Sender: ROCHE
  Company Number: ID-ROCHE-3427264

PATIENT
  Age: 35 Year
  Sex: Male

DRUGS (12)
  1. OSELTAMIVIR [Suspect]
     Active Substance: OSELTAMIVIR
     Indication: COVID-19
     Route: 065
  2. AZITROMISIN [Concomitant]
  3. VITAMIN C [Concomitant]
     Active Substance: ASCORBIC ACID
  4. LANSOPRAZOLE [Concomitant]
     Active Substance: LANSOPRAZOLE
  5. ZINC [Concomitant]
     Active Substance: ZINC
  6. DOMPERIDONE [Concomitant]
     Active Substance: DOMPERIDONE
  7. HERBALS\TURMERIC [Concomitant]
     Active Substance: HERBALS\TURMERIC
  8. CODEINE [Concomitant]
     Active Substance: CODEINE
  9. ALLOPURINOL [Concomitant]
     Active Substance: ALLOPURINOL
  10. FAVIPIRAVIR [Concomitant]
     Active Substance: FAVIPIRAVIR
  11. VOLTAREN [Concomitant]
     Active Substance: DICLOFENAC SODIUM
  12. EPERISONE HCL [Concomitant]

REACTIONS (5)
  - Off label use [Unknown]
  - Nausea [Unknown]
  - Hypersensitivity [Unknown]
  - Alanine aminotransferase increased [Unknown]
  - Aspartate aminotransferase increased [Unknown]
